FAERS Safety Report 12277907 (Version 2)
Quarter: 2016Q3

REPORT INFORMATION
  Report Type: Spontaneous
  Country: JP (occurrence: JP)
  Receive Date: 20160418
  Receipt Date: 20160705
  Transmission Date: 20161109
  Serious: Yes (Death, Hospitalization)
  Sender: FDA-Public Use
  Company Number: JP-BAYER-2016-069305

PATIENT
  Age: 66 Year
  Sex: Male
  Weight: 52.3 kg

DRUGS (9)
  1. OXYCONTIN [Concomitant]
     Active Substance: OXYCODONE HYDROCHLORIDE
     Indication: CANCER PAIN
     Dosage: DAILY DOSE 10 MG
     Route: 048
     Dates: start: 20160311, end: 20160315
  2. OXINORM [OXYCODONE HYDROCHLORIDE] [Concomitant]
     Indication: CANCER PAIN
     Dosage: DAILY DOSE 2.5 MG
     Route: 048
     Dates: start: 20160313, end: 20160319
  3. NEXAVAR [Suspect]
     Active Substance: SORAFENIB
     Indication: HEPATOCELLULAR CARCINOMA
     Dosage: DAILY DOSE 800 MG
     Route: 048
     Dates: start: 20160217, end: 201603
  4. EXCELASE [Concomitant]
     Active Substance: PANCRELIPASE
     Dosage: UNK
     Route: 048
     Dates: start: 20160309, end: 20160318
  5. DOMPERIDONE [Concomitant]
     Active Substance: DOMPERIDONE
     Indication: ABDOMINAL DISCOMFORT
     Dosage: DAILY DOSE 30 MG
     Route: 048
     Dates: start: 20160104, end: 20160318
  6. ANPEC [MORPHINE HYDROCHLORIDE] [Concomitant]
     Indication: CANCER PAIN
     Dosage: DAILY DOSE 10 MG
     Route: 054
     Dates: start: 20160315, end: 20160319
  7. FLAVITAN [Concomitant]
     Active Substance: FLAVIN ADENINE DINUCLEOTIDE
     Dosage: DAILY DOSE 15 MG
     Route: 048
     Dates: start: 20160310, end: 20160318
  8. NOVAMIN [Concomitant]
     Active Substance: PROCHLORPERAZINE MALEATE
     Indication: VOMITING
     Dosage: DAILY DOSE 15 MG
     Route: 048
     Dates: start: 20160313, end: 20160318
  9. FENTANYL CITRATE. [Concomitant]
     Active Substance: FENTANYL CITRATE
     Indication: CANCER PAIN
     Dosage: DAILY DOSE 1 MG
     Route: 062
     Dates: start: 20160315, end: 20160319

REACTIONS (3)
  - Hepatocellular carcinoma [Fatal]
  - Ascites [None]
  - Pleural effusion [Fatal]

NARRATIVE: CASE EVENT DATE: 20160301
